FAERS Safety Report 21909634 (Version 2)
Quarter: 2023Q1

REPORT INFORMATION
  Report Type: Report from Study
  Country: FR (occurrence: None)
  Receive Date: 20230125
  Receipt Date: 20230130
  Transmission Date: 20230418
  Serious: No
  Sender: FDA-Public Use
  Company Number: FR-ROCHE-3269940

PATIENT
  Age: 69 Year
  Sex: Female
  Weight: 53 kg

DRUGS (11)
  1. ATEZOLIZUMAB [Suspect]
     Active Substance: ATEZOLIZUMAB
     Indication: Hepatocellular carcinoma
     Dosage: DOSE LAST STUDY DRUG ADMIN PRIOR AE AND SAE IS 1200 MG?START DATE OF MOST RECENT DOSE OF STUDY DRUG
     Route: 041
     Dates: start: 20230104
  2. LENVATINIB [Suspect]
     Active Substance: LENVATINIB
     Indication: Hepatocellular carcinoma
     Dosage: DOSE LAST STUDY DRUG ADMIN PRIOR AE AND SAE IS 8 MG?START DATE OF MOST RECENT DOSE OF STUDY DRUG PRI
     Route: 048
     Dates: start: 20230104
  3. PROPRANOLOL HYDROCHLORIDE [Concomitant]
     Active Substance: PROPRANOLOL HYDROCHLORIDE
     Route: 048
     Dates: start: 2000
  4. PROPRANOLOL HYDROCHLORIDE [Concomitant]
     Active Substance: PROPRANOLOL HYDROCHLORIDE
     Dates: start: 20221213
  5. ALDACTONE [Concomitant]
     Active Substance: SPIRONOLACTONE
     Route: 048
     Dates: start: 202108
  6. CALCIUM CARBONATE [Concomitant]
     Active Substance: CALCIUM CARBONATE
     Route: 048
     Dates: start: 202108
  7. DOLIPRANE [Concomitant]
     Active Substance: ACETAMINOPHEN
     Route: 048
     Dates: start: 1992
  8. GRINTUSS [Concomitant]
     Route: 048
     Dates: start: 20221229, end: 20221229
  9. VICKS VAPORUB (FRANCE) [Concomitant]
     Route: 061
     Dates: start: 20221229
  10. DUPHALAC [Concomitant]
     Active Substance: LACTULOSE
     Route: 048
     Dates: start: 20230120
  11. TITANOREINE [Concomitant]
     Active Substance: CARRAGEENAN\TITANIUM\ZINC
     Route: 061
     Dates: start: 1979

REACTIONS (2)
  - Jaundice [Not Recovered/Not Resolved]
  - Encephalopathy [Recovered/Resolved]

NARRATIVE: CASE EVENT DATE: 20230112
